FAERS Safety Report 6817565-2 (Version None)
Quarter: 2010Q3

REPORT INFORMATION
  Report Type: 
  Country: None (occurrence: None)
  Receive Date: 20100706
  Receipt Date: 20100629
  Transmission Date: 20110219
  Serious: Yes (Other)
  Sender: FDA-Public Use
  Company Number: IL-ELI_LILLY_AND_COMPANY-IL201006007869

PATIENT

DRUGS (7)
  1. BYETTA [Suspect]
     Indication: TYPE 2 DIABETES MELLITUS
     Dosage: UNK UNK, 4/D
     Route: 065
  2. AMARYL [Concomitant]
     Dosage: 3 MG, UNKNOWN
     Route: 065
  3. LIPANOR [Concomitant]
     Dosage: 10 MG, UNKNOWN
     Route: 065
  4. CARDILOC [Concomitant]
     Dosage: 5 MG, UNKNOWN
     Route: 065
  5. TRITACE COMP [Concomitant]
     Dosage: 5 MG, UNKNOWN
     Route: 065
  6. ACE INHIBITORS [Concomitant]
     Dosage: UNK, UNKNOWN
     Route: 065
  7. DIURETICS [Concomitant]
     Dosage: UNK, UNKNOWN
     Route: 065

REACTIONS (1)
  - PANCREATITIS ACUTE [None]
